FAERS Safety Report 8582251-8 (Version None)
Quarter: 2012Q2

REPORT INFORMATION
  Report Type: 
  Country: None (occurrence: None)
  Receive Date: 20120423
  Receipt Date: 20091030
  Transmission Date: 20120825
  Serious: Yes (Other)
  Sender: FDA-Public Use
  Company Number: PHEH2009US09414

PATIENT
  Age: 25 Year
  Sex: Female

DRUGS (3)
  1. EXJADE [Suspect]
     Indication: SICKLE CELL ANAEMIA
     Dosage: DAILY, ORAL
     Route: 048
     Dates: start: 20090601, end: 20090723
  2. EXJADE [Suspect]
     Indication: IRON OVERLOAD
     Dosage: DAILY, ORAL
     Route: 048
     Dates: start: 20090601, end: 20090723
  3. ACETAMINOPHEN [Concomitant]

REACTIONS (3)
  - SICKLE CELL ANAEMIA WITH CRISIS [None]
  - SERUM FERRITIN ABNORMAL [None]
  - HEPATIC ENZYME INCREASED [None]
